FAERS Safety Report 9308504 (Version 3)
Quarter: 2013Q4

REPORT INFORMATION
  Report Type: Spontaneous
  Country: US (occurrence: US)
  Receive Date: 20130524
  Receipt Date: 20131128
  Transmission Date: 20140711
  Serious: Yes (Other)
  Sender: FDA-Public Use
  Company Number: US-ROCHE-1071231

PATIENT
  Age: 26 Year
  Sex: Female
  Weight: 59.02 kg

DRUGS (5)
  1. ACCUTANE [Suspect]
     Indication: ACNE
     Route: 048
     Dates: start: 20020926, end: 20021211
  2. AMNESTEEM [Suspect]
     Indication: ACNE
     Route: 065
     Dates: start: 20021211, end: 20030110
  3. AMNESTEEM [Suspect]
     Route: 065
     Dates: start: 20030122, end: 20030321
  4. MINOCIN [Concomitant]
  5. OMEPRAZOLE [Concomitant]

REACTIONS (6)
  - Inflammatory bowel disease [Unknown]
  - Crohn^s disease [Unknown]
  - Emotional distress [Unknown]
  - Depression [Unknown]
  - Anal fistula [Unknown]
  - Irritable bowel syndrome [Unknown]
